FAERS Safety Report 8845725 (Version 2)
Quarter: 2012Q4

REPORT INFORMATION
  Report Type: 
  Country: US (occurrence: US)
  Receive Date: 20121017
  Receipt Date: 20121106
  Transmission Date: 20130627
  Serious: No
  Sender: FDA-Public Use
  Company Number: US-ASTRAZENECA-2012SE72528

PATIENT
  Age: 61 Year
  Sex: Female
  Weight: 55.3 kg

DRUGS (7)
  1. SYMBICORT PMDI [Suspect]
     Indication: ASTHMA
     Dosage: 160 MCG, 1 PUFF BID
     Route: 055
     Dates: start: 2011
  2. SYMBICORT PMDI [Suspect]
     Indication: BRONCHITIS
     Dosage: 160 MCG, 1 PUFF BID
     Route: 055
     Dates: start: 2011
  3. SYMBICORT PMDI [Suspect]
     Indication: CHRONIC OBSTRUCTIVE PULMONARY DISEASE
     Dosage: 160 MCG, 1 PUFF BID
     Route: 055
     Dates: start: 2011
  4. SYMBICORT PMDI [Suspect]
     Indication: ASTHMA
     Dosage: 160 MCG, 2 PUFFS BID
     Route: 055
     Dates: start: 20120917
  5. SYMBICORT PMDI [Suspect]
     Indication: BRONCHITIS
     Dosage: 160 MCG, 2 PUFFS BID
     Route: 055
     Dates: start: 20120917
  6. SYMBICORT PMDI [Suspect]
     Indication: CHRONIC OBSTRUCTIVE PULMONARY DISEASE
     Dosage: 160 MCG, 2 PUFFS BID
     Route: 055
     Dates: start: 20120917
  7. VENTOLIN [Concomitant]
     Indication: RESPIRATORY DISORDER
     Dosage: AS REQUIRED
     Route: 055
     Dates: start: 2011

REACTIONS (6)
  - Dyspnoea [Unknown]
  - Chronic obstructive pulmonary disease [Unknown]
  - Malaise [Unknown]
  - Circumstance or information capable of leading to medication error [Unknown]
  - Off label use [Recovered/Resolved]
  - Intentional drug misuse [Recovered/Resolved]
